FAERS Safety Report 7396248-7 (Version None)
Quarter: 2011Q1

REPORT INFORMATION
  Report Type: 
  Country: None (occurrence: None)
  Receive Date: 20110301
  Receipt Date: 20100923
  Transmission Date: 20110831
  Serious: Yes (Other)
  Sender: FDA-Public Use
  Company Number: 2211100-US-JNJFOC-20100800927

PATIENT
  Sex: Male

DRUGS (1)
  1. CONCENTRATED MOTRIN INFANTS DROPS [Suspect]
     Indication: PAIN
     Dosage: ORAL
     Route: 048

REACTIONS (2)
  - RASH VESICULAR [None]
  - PRODUCT QUALITY ISSUE [None]
